FAERS Safety Report 5312874-0 (Version None)
Quarter: 2007Q2

REPORT INFORMATION
  Report Type: 
  Country: None (occurrence: None)
  Receive Date: 20070430
  Receipt Date: 20070418
  Transmission Date: 20071010
  Serious: Yes (Other)
  Sender: FDA-Public Use
  Company Number: FR-PFIZER INC-2007022422

PATIENT
  Sex: Female
  Weight: 48 kg

DRUGS (3)
  1. CHAMPIX [Suspect]
     Indication: SMOKING CESSATION THERAPY
     Route: 048
     Dates: start: 20070220, end: 20070401
  2. COUMADIN [Interacting]
     Route: 048
  3. ANTITHROMBOTIC AGENTS [Concomitant]

REACTIONS (6)
  - COAGULATION TIME PROLONGED [None]
  - DRUG INTERACTION [None]
  - ECCHYMOSIS [None]
  - HAEMATOMA [None]
  - INTERNATIONAL NORMALISED RATIO INCREASED [None]
  - PROTHROMBIN TIME PROLONGED [None]
